FAERS Safety Report 7820173-8 (Version None)
Quarter: 2011Q4

REPORT INFORMATION
  Report Type: 
  Country: None (occurrence: None)
  Receive Date: 20111018
  Receipt Date: 20111011
  Transmission Date: 20120403
  Serious: Yes (Hospitalization)
  Sender: FDA-Public Use
  Company Number: PHHY2011US64712

PATIENT
  Sex: Female

DRUGS (18)
  1. FAMPRIDINE [Suspect]
     Indication: GAIT DISTURBANCE
     Dosage: 10 MG, BID
     Dates: start: 20100323
  2. SALINE [Concomitant]
     Dosage: 0.9 %, UNK
  3. ATIVAN [Concomitant]
     Dosage: 0.5 MG, UNK
  4. LOVENOX [Concomitant]
     Dosage: UNK
  5. NEURONTIN [Concomitant]
     Dosage: 100 MG, UNK
  6. HEP-LOCK [Concomitant]
     Dosage: 100 UNIT/ML
  7. FERROUS SULFATE TAB [Concomitant]
     Dosage: 325 MG, UNK
  8. VESICARE [Concomitant]
     Dosage: 10 MG, UNK
  9. MULTIPLE VITAMIN [Concomitant]
  10. POTASSIUM CHLORIDE [Concomitant]
     Dosage: 20 %, 40 MEQ/15 ML
  11. GILENYA [Suspect]
     Indication: MULTIPLE SCLEROSIS
     Dosage: 0.5 MG, QD
     Route: 048
     Dates: start: 20110405, end: 20110716
  12. ASCORBIC ACID [Concomitant]
     Dosage: 500 MG, UNK
  13. SODIUM PHOSPHATES [Concomitant]
  14. LIORESAL [Concomitant]
     Dosage: 10 MG, UNK
  15. CALCIUM CARBONATE W/VITAMIN D NOS [Concomitant]
     Dosage: UNK
  16. DULCOLAX [Concomitant]
     Dosage: 5 MG, UNK
  17. AMBIEN [Concomitant]
     Dosage: 5 MG, UNK
  18. SERZONE [Concomitant]
     Dosage: 100 MG, UNK

REACTIONS (15)
  - BLOOD ALKALINE PHOSPHATASE INCREASED [None]
  - SENSORY DISTURBANCE [None]
  - BLOOD CALCIUM DECREASED [None]
  - PROTEIN TOTAL DECREASED [None]
  - PERONEAL NERVE PALSY [None]
  - ASTHENIA [None]
  - ASPARTATE AMINOTRANSFERASE INCREASED [None]
  - BLOOD ALBUMIN DECREASED [None]
  - URINARY TRACT INFECTION [None]
  - JAUNDICE [None]
  - ABDOMINAL PAIN [None]
  - BLOOD BILIRUBIN INCREASED [None]
  - MUSCULAR WEAKNESS [None]
  - HYPOTONIA [None]
  - ALANINE AMINOTRANSFERASE INCREASED [None]
